FAERS Safety Report 6690848-5 (Version None)
Quarter: 2010Q2

REPORT INFORMATION
  Report Type: 
  Country: None (occurrence: None)
  Receive Date: 20100421
  Receipt Date: 20100412
  Transmission Date: 20101027
  Serious: Yes (Hospitalization, Other)
  Sender: FDA-Public Use
  Company Number: US-AMGEN-QUU377870

PATIENT
  Sex: Female

DRUGS (3)
  1. ENBREL [Suspect]
     Indication: RHEUMATOID ARTHRITIS
     Route: 058
     Dates: start: 20010101
  2. PREDNISONE TAB [Concomitant]
  3. UNSPECIFIED ANTIBIOTIC [Concomitant]

REACTIONS (12)
  - ABDOMINAL DISCOMFORT [None]
  - ARTHRALGIA [None]
  - ARTHRITIS [None]
  - BRONCHITIS [None]
  - JOINT EFFUSION [None]
  - JOINT SWELLING [None]
  - MITRAL VALVE DISEASE [None]
  - NIGHT SWEATS [None]
  - OROPHARYNGEAL PAIN [None]
  - SCLERITIS [None]
  - STILL'S DISEASE ADULT ONSET [None]
  - URTICARIA [None]
